FAERS Safety Report 6101062-6 (Version None)
Quarter: 2009Q1

REPORT INFORMATION
  Report Type: 
  Country: None (occurrence: None)
  Receive Date: 20090304
  Receipt Date: 20090226
  Transmission Date: 20090719
  Serious: Yes (Life-Threatening, Hospitalization, Other)
  Sender: FDA-Public Use
  Company Number: CH-BRISTOL-MYERS SQUIBB COMPANY-14525067

PATIENT
  Age: 61 Year
  Sex: Female

DRUGS (10)
  1. LITALIR CAPS 500 MG [Suspect]
     Route: 048
     Dates: start: 20070101, end: 20081210
  2. CEFUROXIME [Suspect]
     Indication: PYREXIA
     Route: 048
     Dates: start: 20081205, end: 20081209
  3. CEFUROXIME [Suspect]
     Indication: OROPHARYNGEAL PAIN
     Route: 048
     Dates: start: 20081205, end: 20081209
  4. METFORMIN HCL [Suspect]
     Indication: TYPE 2 DIABETES MELLITUS
     Route: 048
     Dates: start: 20010101, end: 20081210
  5. AMARYL [Concomitant]
     Dosage: FORM: TAB
     Route: 048
     Dates: start: 20010101, end: 20081210
  6. ASPIRIN [Concomitant]
     Dosage: FORM: ENTERIC COATED TAB (ASS CARDIO SPIRIG)
     Route: 048
     Dates: start: 20060101
  7. COZAAR [Concomitant]
     Route: 048
  8. PANTOZOL [Concomitant]
     Dosage: FORM: TAB
     Route: 048
  9. SORTIS [Concomitant]
     Dosage: FORM: FILM COATED TABLETS
     Route: 048
  10. CARDAXEN [Concomitant]
     Route: 048

REACTIONS (4)
  - CHOLESTATIC LIVER INJURY [None]
  - HYPERAMMONAEMIA [None]
  - LACTIC ACIDOSIS [None]
  - RENAL FAILURE ACUTE [None]
